FAERS Safety Report 7608751-2 (Version None)
Quarter: 2011Q3

REPORT INFORMATION
  Report Type: 
  Country: None (occurrence: None)
  Receive Date: 20110714
  Receipt Date: 20110714
  Transmission Date: 20111222
  Serious: Yes (Life-Threatening, Hospitalization, Other)
  Sender: FDA-Public Use
  Company Number: None

PATIENT
  Age: 1 Day
  Sex: Male
  Weight: 2.7215 kg

DRUGS (1)
  1. TYZEKA [Suspect]
     Indication: HEPATITIS B
     Dosage: 600 MG
     Route: 048
     Dates: start: 20070120, end: 20070401

REACTIONS (10)
  - CENTRAL NERVOUS SYSTEM LESION [None]
  - FOETAL DISTRESS SYNDROME [None]
  - APHASIA [None]
  - EXPOSURE DURING BREAST FEEDING [None]
  - INFANTILE APNOEIC ATTACK [None]
  - CEREBRAL PALSY [None]
  - NEONATAL HYPOXIA [None]
  - BRAIN OEDEMA [None]
  - HYPOTONIA [None]
  - MATERNAL DRUGS AFFECTING FOETUS [None]
